FAERS Safety Report 20649591 (Version 4)
Quarter: 2022Q2

REPORT INFORMATION
  Report Type: Spontaneous
  Country: PE (occurrence: PE)
  Receive Date: 20220329
  Receipt Date: 20220510
  Transmission Date: 20220721
  Serious: Yes (Other)
  Sender: FDA-Public Use
  Company Number: PE-PFIZER INC-202200440373

PATIENT
  Age: 57 Year
  Sex: Female

DRUGS (6)
  1. MEDROL [Suspect]
     Active Substance: METHYLPREDNISOLONE
     Indication: Rheumatoid arthritis
     Dosage: 16 MG, DAILY
     Route: 048
     Dates: start: 20220217, end: 20220307
  2. MEDROL [Suspect]
     Active Substance: METHYLPREDNISOLONE
     Dosage: 8 MG, DAILY
     Route: 048
     Dates: start: 20220308, end: 20220417
  3. MEDROL [Suspect]
     Active Substance: METHYLPREDNISOLONE
     Dosage: 4 MG, DAILY
     Route: 048
     Dates: start: 20220418, end: 20220425
  4. XELJANZ [Concomitant]
     Active Substance: TOFACITINIB CITRATE
     Dosage: 1 DF, DAILY
     Dates: start: 2019
  5. FOLIC ACID [Concomitant]
     Active Substance: FOLIC ACID
     Dosage: 4 DF, DAILY
     Dates: start: 2020
  6. ARTRIPLUS [Concomitant]
     Dosage: 1 DF, 2X/WEEK
     Dates: start: 2020

REACTIONS (13)
  - Cardiac discomfort [Recovered/Resolved]
  - Arrhythmia [Recovered/Resolved]
  - Headache [Not Recovered/Not Resolved]
  - Lip swelling [Recovered/Resolved]
  - Head discomfort [Recovered/Resolved]
  - Swelling face [Recovering/Resolving]
  - Abdominal distension [Not Recovered/Not Resolved]
  - Dry eye [Recovered/Resolved]
  - Burning sensation [Recovered/Resolved]
  - Vitamin B12 deficiency [Unknown]
  - Hypertension [Unknown]
  - Cortisol decreased [Unknown]
  - Oxygen saturation decreased [Unknown]

NARRATIVE: CASE EVENT DATE: 20220201
